FAERS Safety Report 9357617 (Version 1)
Quarter: 2013Q2

REPORT INFORMATION
  Report Type: Spontaneous
  Country: SE (occurrence: SE)
  Receive Date: 20130620
  Receipt Date: 20130620
  Transmission Date: 20140414
  Serious: Yes (Other)
  Sender: FDA-Public Use
  Company Number: SE-JNJFOC-20130612079

PATIENT
  Sex: Female

DRUGS (7)
  1. DOXORUBICIN [Suspect]
     Indication: BREAST CANCER
     Dosage: SIX CYCLES
     Route: 042
  2. DOCETAXEL [Suspect]
     Indication: BREAST CANCER
     Dosage: SIX CYCLES
     Route: 065
  3. CYCLOPHOSPHAMIDE [Suspect]
     Indication: BREAST CANCER
     Dosage: SIX CYCLES
     Route: 065
  4. GRANULOCYTE COLONY STIMULATING FACTOR [Concomitant]
     Indication: PALLIATIVE CARE
     Route: 065
  5. CIPROFLOXACIN [Concomitant]
     Indication: PROPHYLAXIS
     Dosage: GIVEN DAY 5 -14
     Route: 065
  6. 5-HT3 SEROTONIN ANTAGONIST [Concomitant]
     Route: 065
  7. STEROIDS NOS [Concomitant]
     Route: 065

REACTIONS (1)
  - Peripheral sensory neuropathy [Unknown]
